FAERS Safety Report 9789783 (Version 2)
Quarter: 2014Q1

REPORT INFORMATION
  Report Type: Spontaneous
  Country: ES (occurrence: None)
  Receive Date: 20131227
  Receipt Date: 20140107
  Transmission Date: 20141002
  Serious: Yes (Other)
  Sender: FDA-Public Use
  Company Number: AUR-APL-2013-10736

PATIENT
  Age: 74 Year
  Sex: Female

DRUGS (4)
  1. AMLODIPINE (AMLODIPINE) [Suspect]
     Indication: PRODUCT USED FOR UNKNOWN INDICATION
  2. VALSARTAN (VALSARTAN) [Concomitant]
  3. TORASEMIDE (TORASEMIDE) [Concomitant]
  4. LEVOTHYROXINE (LEVOTHYROXINE) [Concomitant]

REACTIONS (11)
  - Complex regional pain syndrome [None]
  - Oedema peripheral [None]
  - Pain in extremity [None]
  - Injury [None]
  - Peau d^orange [None]
  - Depression [None]
  - Anxiety [None]
  - Dysaesthesia [None]
  - Amyotrophy [None]
  - Allodynia [None]
  - Mental status changes [None]
